FAERS Safety Report 19224193 (Version 1)
Quarter: 2021Q2

REPORT INFORMATION
  Report Type: Spontaneous
  Country: CA (occurrence: CA)
  Receive Date: 20210506
  Receipt Date: 20210506
  Transmission Date: 20210717
  Serious: Yes (Hospitalization)
  Sender: FDA-Public Use
  Company Number: CA-GLAXOSMITHKLINE-CA2021AMR095882

PATIENT
  Age: 77 Year
  Sex: Male

DRUGS (1)
  1. ACITRETIN. [Suspect]
     Active Substance: ACITRETIN
     Indication: CUTANEOUS T-CELL LYMPHOMA
     Dosage: 50 MG, QD, 1 IN 1 D
     Route: 048

REACTIONS (2)
  - Diffuse idiopathic skeletal hyperostosis [Unknown]
  - Off label use [Unknown]
